FAERS Safety Report 20633354 (Version 3)
Quarter: 2024Q1

REPORT INFORMATION
  Report Type: Spontaneous
  Country: AT (occurrence: AT)
  Receive Date: 20220324
  Receipt Date: 20240321
  Transmission Date: 20240409
  Serious: Yes (Other)
  Sender: FDA-Public Use
  Company Number: AT-NOVARTISPH-NVSC2022AT064629

PATIENT
  Age: 8 Year
  Sex: Male

DRUGS (16)
  1. MEKINIST [Suspect]
     Active Substance: TRAMETINIB DIMETHYL SULFOXIDE
     Indication: Astrocytoma
     Dosage: UNK
     Route: 065
     Dates: start: 202105
  2. MEKINIST [Suspect]
     Active Substance: TRAMETINIB DIMETHYL SULFOXIDE
     Dosage: 0.5 MG
     Route: 065
     Dates: start: 202112
  3. CARBOPLATIN [Suspect]
     Active Substance: CARBOPLATIN
     Indication: Astrocytoma
     Dosage: UNK
     Route: 065
     Dates: start: 2018
  4. RIBOCICLIB [Suspect]
     Active Substance: RIBOCICLIB
     Indication: Product used for unknown indication
     Dosage: UNK
     Route: 065
  5. VINCRISTINE [Concomitant]
     Active Substance: VINCRISTINE
     Indication: Brain neoplasm
     Dosage: UNK
     Route: 065
     Dates: start: 2018
  6. VINCRISTINE [Concomitant]
     Active Substance: VINCRISTINE
     Dosage: UNK
     Route: 065
     Dates: start: 201806
  7. VINBLASTINE [Concomitant]
     Active Substance: VINBLASTINE
     Indication: Product used for unknown indication
     Dosage: UNK
     Route: 065
     Dates: start: 201906
  8. VINBLASTINE [Concomitant]
     Active Substance: VINBLASTINE
     Dosage: UNK
     Route: 065
     Dates: start: 201906, end: 202012
  9. SULFAMETHOXAZOLE\TRIMETHOPRIM [Concomitant]
     Active Substance: SULFAMETHOXAZOLE\TRIMETHOPRIM
     Indication: Product used for unknown indication
     Dosage: UNK, 5 - 0 - 5 M EVERY  MONDAY,  TUESDAY, WEDNESDA
     Route: 048
  10. ALFACALCIDOL [Concomitant]
     Active Substance: ALFACALCIDOL
     Indication: Product used for unknown indication
     Dosage: 10 DRP, QD
     Route: 065
  11. MELATONIN [Concomitant]
     Active Substance: MELATONIN
     Indication: Product used for unknown indication
     Dosage: 2 UNK, QD (DAILY 1  TABLET  BEFORE  GOING TO  SLEEP)
     Route: 065
  12. CHOLECALCIFEROL [Suspect]
     Active Substance: CHOLECALCIFEROL
     Indication: Product used for unknown indication
     Dosage: 2 DRP, QD
     Route: 065
  13. ENANTONE LP [Concomitant]
     Active Substance: LEUPROLIDE ACETATE
     Indication: Product used for unknown indication
     Dosage: 1 DOSAGE FORM, Q4W TWO CHAMBER SYRINGE (1 AMPULE)
     Route: 058
  14. DESMOPRESSIN ACETATE [Concomitant]
     Active Substance: DESMOPRESSIN ACETATE
     Indication: Product used for unknown indication
     Dosage: UNK (60 MCG - 0 - 60 MCG)
     Route: 065
  15. POTASSIUM PHOSPHATE, MONOBASIC\SODIUM PHOSPHATE, DIBASIC, ANHYDROUS [Concomitant]
     Active Substance: POTASSIUM PHOSPHATE, MONOBASIC\SODIUM PHOSPHATE, DIBASIC, ANHYDROUS
     Indication: Product used for unknown indication
     Dosage: UNK DAILY 1 - 1 ? 1
     Route: 065
  16. LEVOTHYROXINE SODIUM [Concomitant]
     Active Substance: LEVOTHYROXINE SODIUM
     Indication: Product used for unknown indication
     Dosage: 25 MCG (DAILY 1 1/2  TABLET 30  MINUTES  BEFORE  BREAKFAST)
     Route: 065

REACTIONS (4)
  - Astrocytoma [Unknown]
  - Malignant neoplasm progression [Unknown]
  - Drug hypersensitivity [Unknown]
  - Product use in unapproved indication [Unknown]
